FAERS Safety Report 23172941 (Version 1)
Quarter: 2023Q4

REPORT INFORMATION
  Report Type: Spontaneous
  Country: CN (occurrence: None)
  Receive Date: 20231110
  Receipt Date: 20231110
  Transmission Date: 20240109
  Serious: Yes (Life-Threatening, Other)
  Sender: FDA-Public Use
  Company Number: 2023A255642

PATIENT
  Age: 65 Year
  Sex: Male
  Weight: 61 kg

DRUGS (3)
  1. TICAGRELOR [Suspect]
     Active Substance: TICAGRELOR
     Indication: Platelet disorder
     Route: 048
     Dates: start: 20231026, end: 20231030
  2. ASPIRIN [Suspect]
     Active Substance: ASPIRIN
     Indication: Platelet disorder
     Route: 048
     Dates: start: 20231026, end: 20231026
  3. ASPIRIN [Suspect]
     Active Substance: ASPIRIN
     Indication: Platelet disorder
     Route: 048
     Dates: start: 20231027, end: 20231030

REACTIONS (2)
  - Hypovolaemic shock [Recovering/Resolving]
  - Lower gastrointestinal haemorrhage [Recovering/Resolving]

NARRATIVE: CASE EVENT DATE: 20231030
